FAERS Safety Report 5227461-2 (Version None)
Quarter: 2007Q1

REPORT INFORMATION
  Report Type: 
  Country: None (occurrence: None)
  Receive Date: 20070202
  Receipt Date: 20070126
  Transmission Date: 20070707
  Serious: Yes (Death)
  Sender: FDA-Public Use
  Company Number: JP-ELI_LILLY_AND_COMPANY-JP200701003598

PATIENT
  Age: 76 Year
  Sex: Female
  Weight: 48.7 kg

DRUGS (7)
  1. RALOXIFENE HCL [Suspect]
     Indication: OSTEOPOROSIS POSTMENOPAUSAL
     Dosage: 60 MG, DAILY (1/D)
     Route: 048
     Dates: start: 20050124, end: 20051027
  2. ALFAROL [Concomitant]
     Indication: OSTEOPOROSIS POSTMENOPAUSAL
     Dosage: 1 UG, DAILY (1/D)
     Route: 048
     Dates: end: 20051027
  3. TAKEPRON [Concomitant]
     Indication: REFLUX OESOPHAGITIS
     Dosage: 30 MG, DAILY (1/D)
     Route: 048
     Dates: end: 20051027
  4. LIPOVAS [Concomitant]
     Indication: HYPERLIPIDAEMIA
     Dosage: 5 MG, DAILY (1/D)
     Route: 048
     Dates: end: 20051027
  5. URSO [Concomitant]
     Indication: HEPATITIS C
     Dosage: 100 MG, 3/D
     Route: 048
     Dates: end: 20051027
  6. AMLODIPINE BESYLATE [Concomitant]
     Indication: HYPERTENSION
     Dosage: 5 MG, DAILY (1/D)
     Route: 048
     Dates: end: 20051027
  7. SHOUSAIKOTOU [Concomitant]
     Indication: HEPATITIS C
     Dosage: 2.5 G, DAILY (1/D)
     Route: 048
     Dates: end: 20051027

REACTIONS (1)
  - LARGE INTESTINE CARCINOMA [None]
